FAERS Safety Report 12540329 (Version 1)
Quarter: 2016Q3

REPORT INFORMATION
  Report Type: Spontaneous
  Country: US (occurrence: US)
  Receive Date: 20160708
  Receipt Date: 20160708
  Transmission Date: 20161109
  Serious: Yes (Other)
  Sender: FDA-Public Use
  Company Number: US-VIIV HEALTHCARE LIMITED-US2016GSK097190

PATIENT
  Sex: Male

DRUGS (1)
  1. ZIDOVUDINE. [Suspect]
     Active Substance: ZIDOVUDINE
     Indication: ANTIVIRAL PROPHYLAXIS
     Dosage: 2 MG/KG, UNK
     Route: 064

REACTIONS (9)
  - Diarrhoea [Unknown]
  - Lymphadenopathy [Unknown]
  - Viral load increased [Recovered/Resolved]
  - HIV infection [Unknown]
  - Hepatosplenomegaly [Unknown]
  - Foetal exposure during pregnancy [Unknown]
  - Decreased appetite [Unknown]
  - Rhinorrhoea [Unknown]
  - Oral candidiasis [Unknown]
